FAERS Safety Report 9096988 (Version 1)
Quarter: 2013Q1

REPORT INFORMATION
  Report Type: Spontaneous
  Country: US (occurrence: None)
  Receive Date: 20130125
  Receipt Date: 20130125
  Transmission Date: 20140127
  Serious: Yes (Death)
  Sender: FDA-Public Use
  Company Number: FK201300094

PATIENT
  Age: 25 Year
  Sex: Male

DRUGS (1)
  1. PROPOFOL [Suspect]
     Indication: SEDATION
     Dosage: 50 UG/KG/MT INCREASED TO 200UG IN 2 DAYS.

REACTIONS (8)
  - Metabolic acidosis [None]
  - Blood creatine phosphokinase increased [None]
  - Ventricular tachycardia [None]
  - Hypotension [None]
  - Treatment failure [None]
  - Oliguria [None]
  - Hyperkalaemia [None]
  - Blood lactic acid increased [None]
